FAERS Safety Report 8105170-X (Version None)
Quarter: 2012Q1

REPORT INFORMATION
  Report Type: 
  Country: None (occurrence: None)
  Receive Date: 20120201
  Receipt Date: 20120126
  Transmission Date: 20120608
  Serious: No
  Sender: FDA-Public Use
  Company Number: US-PFIZER INC-2012018476

PATIENT
  Sex: Female
  Weight: 62.585 kg

DRUGS (2)
  1. EFFEXOR XR [Suspect]
     Dosage: 150 MG, 1X/DAY
     Route: 048
     Dates: start: 20120101
  2. CLONIDINE [Concomitant]
     Indication: ANXIETY
     Dosage: UNK

REACTIONS (2)
  - DRUG INEFFECTIVE [None]
  - DEPRESSION [None]
